FAERS Safety Report 10097942 (Version 1)
Quarter: 2014Q2

REPORT INFORMATION
  Report Type: Spontaneous
  Country: IT (occurrence: IT)
  Receive Date: 20140423
  Receipt Date: 20140423
  Transmission Date: 20141212
  Serious: Yes (Hospitalization)
  Sender: FDA-Public Use
  Company Number: IT-PFIZER INC-2014109939

PATIENT
  Age: 91 Year
  Sex: Female

DRUGS (6)
  1. TRIATEC [Suspect]
     Dosage: 2.5 MG, DAILY
     Route: 048
  2. ZYLORIC [Suspect]
     Indication: HYPERURICAEMIA
     Dosage: 300 MG, DAILY
     Route: 048
     Dates: start: 20140218, end: 20140401
  3. TRIATEC [Concomitant]
     Dosage: UNK
  4. CARDICOR [Concomitant]
     Dosage: UNK
  5. LASIX [Concomitant]
     Dosage: UNK
  6. LUVION [Concomitant]
     Dosage: UNK

REACTIONS (2)
  - Agranulocytosis [Recovering/Resolving]
  - Pyrexia [Recovering/Resolving]
